FAERS Safety Report 8175388-9 (Version None)
Quarter: 2012Q1

REPORT INFORMATION
  Report Type: 
  Country: None (occurrence: None)
  Receive Date: 20120229
  Receipt Date: 20120223
  Transmission Date: 20120608
  Serious: Yes (Other)
  Sender: FDA-Public Use
  Company Number: US-PFIZER INC-2012050869

PATIENT

DRUGS (1)
  1. GEODON [Suspect]
     Dosage: 20 MG, 2X/DAY

REACTIONS (3)
  - ATRIAL FIBRILLATION [None]
  - AGITATION [None]
  - OESOPHAGECTOMY [None]
